FAERS Safety Report 8479103-0 (Version None)
Quarter: 2012Q2

REPORT INFORMATION
  Report Type: 
  Country: None (occurrence: None)
  Receive Date: 20120629
  Receipt Date: 20120618
  Transmission Date: 20120825
  Serious: Yes (Hospitalization)
  Sender: FDA-Public Use
  Company Number: JP-BRISTOL-MYERS SQUIBB COMPANY-16695553

PATIENT
  Age: 7 Decade
  Sex: Male

DRUGS (3)
  1. DOCETAXEL [Suspect]
     Indication: GASTRIC CANCER
     Dosage: ON DAY 1
     Route: 042
  2. CISPLATIN [Suspect]
     Indication: GASTRIC CANCER
     Route: 042
  3. S-1 [Suspect]
     Indication: GASTRIC CANCER
     Dosage: FROM DAY 1-14
     Route: 048

REACTIONS (1)
  - GASTRIC PERFORATION [None]
